FAERS Safety Report 7573618-5 (Version None)
Quarter: 2011Q2

REPORT INFORMATION
  Report Type: 
  Country: None (occurrence: None)
  Receive Date: 20110627
  Receipt Date: 20110621
  Transmission Date: 20111010
  Serious: Yes (Other)
  Sender: FDA-Public Use
  Company Number: FR-PFIZER INC-2011136927

PATIENT
  Age: 51 Year
  Sex: Female

DRUGS (1)
  1. EFFEXOR XR [Suspect]
     Dosage: 75 MG, 3X/DAY

REACTIONS (1)
  - GASTRITIS EROSIVE [None]
